FAERS Safety Report 5829156-0 (Version None)
Quarter: 2008Q2

REPORT INFORMATION
  Report Type: 
  Country: None (occurrence: None)
  Receive Date: 20080601
  Receipt Date: 20080215
  Transmission Date: 20081010
  Serious: No
  Sender: FDA-Public Use
  Company Number: US200802004232

PATIENT
  Age: 54 Year
  Sex: Female
  Weight: 11.6 kg

DRUGS (6)
  1. BYETTA [Suspect]
     Indication: TYPE 2 DIABETES MELLITUS
     Dosage: 10 UG, 2/D, SUBCUTANEOUS
     Route: 058
     Dates: start: 20060201
  2. GLYBURIDE AND METFORMIN HCL [Concomitant]
  3. ASPIRIN [Concomitant]
  4. NITROGLYCERIN [Concomitant]
  5. DIOVAN (HYDROCHLOROTHIAZIDE, VALSARTAN) [Concomitant]
  6. NORVASC [Concomitant]

REACTIONS (9)
  - BLOOD GLUCOSE DECREASED [None]
  - BLOOD GLUCOSE INCREASED [None]
  - DECREASED APPETITE [None]
  - INFLUENZA [None]
  - INJECTION SITE BRUISING [None]
  - INJECTION SITE PAIN [None]
  - NASAL CONGESTION [None]
  - TOOTH DISORDER [None]
  - WEIGHT DECREASED [None]
